FAERS Safety Report 6396632-4 (Version None)
Quarter: 2009Q4

REPORT INFORMATION
  Report Type: 
  Country: None (occurrence: None)
  Receive Date: 20091012
  Receipt Date: 20091002
  Transmission Date: 20100525
  Serious: Yes (Hospitalization)
  Sender: FDA-Public Use
  Company Number: JP-BRISTOL-MYERS SQUIBB COMPANY-14809008

PATIENT
  Age: 69 Year
  Sex: Female
  Weight: 64 kg

DRUGS (8)
  1. SPRYCEL [Suspect]
     Indication: ACUTE LYMPHOCYTIC LEUKAEMIA
     Dosage: 60X1MG/DAY 40X2MG/DAY FROM 14-JUL-2009 TO 30-JUL-2009
     Route: 048
     Dates: start: 20090709, end: 20090730
  2. VINCRISTINE SULFATE [Suspect]
     Indication: ACUTE LYMPHOCYTIC LEUKAEMIA
     Route: 042
     Dates: start: 20090712
  3. LENOGRASTIM [Concomitant]
     Route: 058
     Dates: start: 20090715, end: 20090720
  4. MOSAPRIDE CITRATE [Concomitant]
     Route: 048
  5. SULFAMETHOXAZOLE [Concomitant]
     Route: 048
  6. ALLOPURINOL [Concomitant]
     Route: 048
  7. FUROSEMIDE [Concomitant]
     Route: 048
     Dates: start: 20090710
  8. BERBERINE [Concomitant]
     Route: 048
     Dates: start: 20090710, end: 20090714

REACTIONS (5)
  - ANAEMIA [None]
  - NEUTROPHIL COUNT DECREASED [None]
  - PLATELET COUNT DECREASED [None]
  - PYREXIA [None]
  - WHITE BLOOD CELL COUNT DECREASED [None]
